FAERS Safety Report 7269677-X (Version None)
Quarter: 2011Q1

REPORT INFORMATION
  Report Type: 
  Country: None (occurrence: None)
  Receive Date: 20110202
  Receipt Date: 20110127
  Transmission Date: 20110831
  Serious: Yes (Hospitalization)
  Sender: FDA-Public Use
  Company Number: FR-SANOFI-AVENTIS-2011SA005346

PATIENT
  Age: 60 Year
  Sex: Male

DRUGS (1)
  1. STILNOX [Suspect]
     Indication: INSOMNIA
     Route: 048
     Dates: end: 20100301

REACTIONS (4)
  - COMPARTMENT SYNDROME [None]
  - DRUG DEPENDENCE [None]
  - DRUG ABUSE [None]
  - COMA [None]
